FAERS Safety Report 4834876-0 (Version None)
Quarter: 2005Q4

REPORT INFORMATION
  Report Type: 
  Country: None (occurrence: None)
  Receive Date: 20051115
  Receipt Date: 20051104
  Transmission Date: 20060501
  Serious: Yes (Hospitalization)
  Sender: FDA-Public Use
  Company Number: SUS1-2005-00809

PATIENT
  Age: 83 Year
  Sex: Male

DRUGS (1)
  1. PENTASA [Suspect]

REACTIONS (1)
  - CARDIAC FAILURE CONGESTIVE [None]
